FAERS Safety Report 19748660 (Version 1)
Quarter: 2021Q3

REPORT INFORMATION
  Report Type: Report from Study
  Country: None (occurrence: MX)
  Receive Date: 20210825
  Receipt Date: 20210825
  Transmission Date: 20211014
  Serious: Yes (Disabling)
  Sender: FDA-Public Use
  Company Number: MX-ABBVIE-21K-107-4052229-00

PATIENT
  Age: 54 Year
  Sex: Male

DRUGS (1)
  1. HUMIRA [Suspect]
     Active Substance: ADALIMUMAB
     Indication: RHEUMATOID ARTHRITIS
     Route: 058
     Dates: start: 20200924

REACTIONS (4)
  - Mobility decreased [Unknown]
  - General physical health deterioration [Unknown]
  - Ascites [Unknown]
  - Weight decreased [Unknown]

NARRATIVE: CASE EVENT DATE: 202107
